FAERS Safety Report 9182503 (Version 1)
Quarter: 2013Q1

REPORT INFORMATION
  Report Type: Spontaneous
  Country: US (occurrence: US)
  Receive Date: 20130322
  Receipt Date: 20130322
  Transmission Date: 20140127
  Serious: Yes (Death)
  Sender: FDA-Public Use
  Company Number: US-BRISTOL-MYERS SQUIBB COMPANY-16778920

PATIENT
  Age: 86 Year
  Sex: Male
  Weight: 31.24 kg

DRUGS (17)
  1. ERBITUX [Suspect]
     Indication: HEAD AND NECK CANCER
     Dosage: 700MG:IV:11AP12:01DOSE?450MG:IV:18APR-16MAY12:5DOSES
     Route: 042
     Dates: start: 20120418, end: 20120516
  2. PROVENTIL [Concomitant]
     Dosage: 2MGTAB:3/DAY:ORAL?2.5MG/3ML NEBULISER:EVERY 4 HRS PRN
  3. VENTOLIN INHALER [Concomitant]
     Dosage: 1DF: 3 PUFFS
     Route: 055
  4. MYLANTA SUSPENSION [Concomitant]
     Route: 048
  5. PACERONE [Concomitant]
     Route: 048
  6. ASPIRIN [Concomitant]
     Route: 048
  7. COREG [Concomitant]
     Route: 048
  8. ADVAIR [Concomitant]
     Dosage: 1DF: 1 PUFF
     Route: 055
  9. LASIX [Concomitant]
     Route: 048
  10. ZESTRIL [Concomitant]
     Route: 048
  11. MAG-OX [Concomitant]
     Route: 048
  12. NIACIN TABS [Concomitant]
     Route: 048
  13. ROXICET [Concomitant]
     Dosage: 1DF: 1-2 TAB PRN
  14. ALDACTONE [Concomitant]
     Route: 048
  15. SPIRIVA [Concomitant]
     Route: 055
  16. COUMADIN TABS 2.5 MG [Concomitant]
     Route: 048
  17. COUMADIN TABS 3 MG [Concomitant]
     Dosage: ALSO 1/2 TAB DAILY
     Route: 048

REACTIONS (5)
  - Sudden death [Fatal]
  - Dehydration [Unknown]
  - Mucosal inflammation [Unknown]
  - Skin irritation [Unknown]
  - Erythema [Unknown]
